FAERS Safety Report 4500772-1 (Version None)
Quarter: 2004Q4

REPORT INFORMATION
  Report Type: 
  Country: None (occurrence: None)
  Receive Date: 20041112
  Receipt Date: 20041112
  Transmission Date: 20050328
  Serious: No
  Sender: FDA-Public Use
  Company Number: None

PATIENT
  Sex: Female

DRUGS (9)
  1. OMEPRAZOLE [Suspect]
     Indication: GASTROOESOPHAGEAL REFLUX DISEASE
     Dosage: 20MG PO QD
     Route: 048
     Dates: start: 20041103, end: 20001108
  2. TRAZODONE HCL [Concomitant]
  3. SYNTHROID [Concomitant]
  4. PREMARIN [Concomitant]
  5. DITROPAN XL [Concomitant]
  6. EFFEXOR XR [Concomitant]
  7. LISINOPRIL [Concomitant]
  8. SPIRONOLACTONE [Concomitant]
  9. FUROSEMIDE [Concomitant]

REACTIONS (3)
  - DISEASE RECURRENCE [None]
  - GASTROOESOPHAGEAL REFLUX DISEASE [None]
  - PHARMACEUTICAL PRODUCT COMPLAINT [None]
